FAERS Safety Report 16137667 (Version 20)
Quarter: 2023Q1

REPORT INFORMATION
  Report Type: Spontaneous
  Country: BR (occurrence: BR)
  Receive Date: 20190401
  Receipt Date: 20230330
  Transmission Date: 20230418
  Serious: Yes (Hospitalization, Other)
  Sender: FDA-Public Use
  Company Number: BR-GLAXOSMITHKLINE-BR2017GSK072615

PATIENT

DRUGS (6)
  1. BENLYSTA [Suspect]
     Active Substance: BELIMUMAB
     Indication: Systemic lupus erythematosus
     Dosage: 730 MG, EVERY 2 MONTHS
     Route: 042
     Dates: start: 20170407
  2. BENLYSTA [Suspect]
     Active Substance: BELIMUMAB
     Dosage: 780 MG
     Route: 042
  3. BENLYSTA [Suspect]
     Active Substance: BELIMUMAB
     Dosage: 790 MG
     Route: 042
  4. BENLYSTA [Suspect]
     Active Substance: BELIMUMAB
     Dosage: 120 MG
     Dates: start: 20170407
  5. PREDNISONE [Concomitant]
     Active Substance: PREDNISONE
     Indication: Product used for unknown indication
     Dosage: UNK
  6. HYDROXYCHLOROQUINE SULFATE [Concomitant]
     Active Substance: HYDROXYCHLOROQUINE SULFATE
     Indication: Product used for unknown indication
     Dosage: UNK

REACTIONS (22)
  - Hip surgery [Unknown]
  - Pyrexia [Recovered/Resolved]
  - Influenza [Unknown]
  - Cough [Unknown]
  - Asthenia [Unknown]
  - Oropharyngeal pain [Unknown]
  - Fatigue [Not Recovered/Not Resolved]
  - Weight increased [Unknown]
  - Pain [Recovered/Resolved]
  - Bone disorder [Unknown]
  - Condition aggravated [Unknown]
  - Weight fluctuation [Unknown]
  - Pharyngeal inflammation [Unknown]
  - Social problem [Unknown]
  - Underdose [Unknown]
  - Overdose [Unknown]
  - Inappropriate schedule of product administration [Unknown]
  - Product dose omission issue [Unknown]
  - Off label use [Unknown]
  - Circumstance or information capable of leading to medication error [Unknown]
  - Product prescribing error [Unknown]
  - Product use issue [Unknown]
